FAERS Safety Report 9541333 (Version 3)
Quarter: 2014Q1

REPORT INFORMATION
  Report Type: Report from Study
  Country: CA (occurrence: CA)
  Receive Date: 20130923
  Receipt Date: 20140214
  Transmission Date: 20141002
  Serious: Yes (Hospitalization)
  Sender: FDA-Public Use
  Company Number: CA-JNJFOC-20130906009

PATIENT
  Age: 65 Year
  Sex: Male
  Weight: 73.7 kg

DRUGS (5)
  1. REMICADE [Suspect]
     Indication: COLITIS ULCERATIVE
     Route: 042
     Dates: start: 20121125, end: 20130708
  2. TRIAZIDE [Concomitant]
     Indication: COLITIS ULCERATIVE
     Route: 065
  3. HYDROCHLOROTHIAZIDE [Concomitant]
     Indication: COLITIS ULCERATIVE
     Route: 065
  4. IMURAN [Concomitant]
     Indication: COLITIS ULCERATIVE
     Route: 065
  5. PREDNISONE [Concomitant]
     Indication: COLITIS ULCERATIVE
     Route: 065

REACTIONS (2)
  - Meningitis [Not Recovered/Not Resolved]
  - Listeriosis [Unknown]
